FAERS Safety Report 23655375 (Version 1)
Quarter: 2024Q1

REPORT INFORMATION
  Report Type: Spontaneous
  Country: IT (occurrence: IT)
  Receive Date: 20240320
  Receipt Date: 20240320
  Transmission Date: 20240410
  Serious: Yes (Other)
  Sender: FDA-Public Use
  Company Number: None

PATIENT
  Age: 53 Year
  Sex: Female
  Weight: 75 kg

DRUGS (1)
  1. ETANERCEPT [Suspect]
     Active Substance: ETANERCEPT
     Indication: Psoriatic arthropathy
     Dosage: 50 MG
     Route: 058
     Dates: start: 20090411, end: 20221207

REACTIONS (2)
  - Breast cancer [Not Recovered/Not Resolved]
  - Contraindication to medical treatment [Not Recovered/Not Resolved]

NARRATIVE: CASE EVENT DATE: 20221207
